FAERS Safety Report 12255367 (Version 1)
Quarter: 2016Q2

REPORT INFORMATION
  Report Type: Spontaneous
  Country: CA (occurrence: CA)
  Receive Date: 20160412
  Receipt Date: 20160412
  Transmission Date: 20160815
  Serious: Yes (Other)
  Sender: FDA-Public Use
  Company Number: CA-AMGEN-CANSP2016044244

PATIENT
  Age: 60 Year
  Sex: Female

DRUGS (21)
  1. LEUCOVORINE [Concomitant]
     Active Substance: LEUCOVORIN
  2. ELAVIL [Concomitant]
     Active Substance: AMITRIPTYLINE HYDROCHLORIDE
  3. ERGOCALCIFEROL. [Concomitant]
     Active Substance: ERGOCALCIFEROL
  4. FOLIC ACID. [Concomitant]
     Active Substance: FOLIC ACID
  5. PANTOLOC                           /01263204/ [Concomitant]
     Active Substance: PANTOPRAZOLE SODIUM
  6. CETAPHIL                           /00498501/ [Concomitant]
  7. ACTONEL [Concomitant]
     Active Substance: RISEDRONATE SODIUM
  8. ESTRIOL [Concomitant]
     Active Substance: ESTRIOL
  9. PREDNISONE. [Concomitant]
     Active Substance: PREDNISONE
  10. PROLIA [Suspect]
     Active Substance: DENOSUMAB
     Indication: PRODUCT USED FOR UNKNOWN INDICATION
     Dosage: UNK
     Route: 065
  11. ASPIRIN                            /00002701/ [Concomitant]
     Active Substance: ASPIRIN
  12. FOLVITE                            /00024201/ [Concomitant]
  13. PREGABALINE [Concomitant]
     Active Substance: PREGABALIN
  14. REFRESH LACRI LUBE [Concomitant]
  15. ACETAMINOPHEN W/PHENYLEPHRINE HYDROCHLORIDE [Concomitant]
     Active Substance: ACETAMINOPHEN\PHENYLEPHRINE HYDROCHLORIDE
     Dosage: UNK
  16. METHOTREXATE [Suspect]
     Active Substance: METHOTREXATE
     Indication: PRODUCT USED FOR UNKNOWN INDICATION
     Dosage: UNK
     Route: 065
  17. APO FENO SUPER [Concomitant]
  18. CELEBREX [Concomitant]
     Active Substance: CELECOXIB
  19. VITAMIN-B COMPLEX [Concomitant]
  20. ENBREL [Suspect]
     Active Substance: ETANERCEPT
     Indication: RHEUMATOID ARTHRITIS
     Dosage: UNK
     Route: 065
  21. CALCIUM [Concomitant]
     Active Substance: CALCIUM

REACTIONS (38)
  - Dysuria [Unknown]
  - Eye degenerative disorder [Unknown]
  - Lacrimal structural disorder [Unknown]
  - Sjogren^s syndrome [Unknown]
  - Dry eye [Unknown]
  - Faeces soft [Unknown]
  - Fatigue [Unknown]
  - Nasal dryness [Unknown]
  - Arthritis [Unknown]
  - Haemoptysis [Unknown]
  - Pyrexia [Unknown]
  - Nasopharyngitis [Unknown]
  - Onychomadesis [Unknown]
  - Vomiting [Unknown]
  - Injection site pain [Unknown]
  - Eye irritation [Unknown]
  - Eyelid margin crusting [Unknown]
  - Osteoarthritis [Unknown]
  - Rheumatoid arthritis [Unknown]
  - Burning sensation [Unknown]
  - Conjunctivitis [Unknown]
  - Eye discharge [Unknown]
  - Gastrointestinal disorder [Unknown]
  - Headache [Unknown]
  - Hypoaesthesia [Unknown]
  - Infection susceptibility increased [Unknown]
  - Rhinorrhoea [Unknown]
  - Epistaxis [Unknown]
  - Eye swelling [Unknown]
  - Nausea [Unknown]
  - Nervous system disorder [Unknown]
  - Eye infection [Unknown]
  - Diarrhoea [Unknown]
  - Eye inflammation [Unknown]
  - Hot flush [Unknown]
  - Visual acuity reduced [Unknown]
  - Rhinitis [Unknown]
  - Cellulitis [Unknown]
